FAERS Safety Report 7756778 (Version 5)
Quarter: 2015Q1

REPORT INFORMATION
  Report Type: Report from Study
  Country: CA (occurrence: CA)
  Receive Date: 20110112
  Receipt Date: 20150107
  Transmission Date: 20150721
  Serious: Yes (Other)
  Sender: FDA-Public Use
  Company Number: PHHY2011CA00533

PATIENT
  Sex: Female

DRUGS (1)
  1. ACLASTA [Suspect]
     Active Substance: ZOLEDRONIC ACID
     Indication: OSTEOPOROSIS
     Dosage: UNK UKN, UNK
     Route: 042
     Dates: start: 20100223

REACTIONS (16)
  - Hypokinesia [Unknown]
  - Scapula fracture [Unknown]
  - Rib fracture [Unknown]
  - Tongue injury [Unknown]
  - Ear pain [Unknown]
  - Bone pain [Unknown]
  - Oral pain [Unknown]
  - Pain in jaw [Unknown]
  - Mastication disorder [Unknown]
  - Tooth loss [Unknown]
  - Mobility decreased [Unknown]
  - Herpes zoster [Unknown]
  - Tooth fracture [Unknown]
  - Pain [Unknown]
  - Back pain [Unknown]
  - Insomnia [Unknown]

NARRATIVE: CASE EVENT DATE: 2013
